FAERS Safety Report 18259640 (Version 1)
Quarter: 2020Q3

REPORT INFORMATION
  Report Type: Spontaneous
  Country: UA (occurrence: UA)
  Receive Date: 20200912
  Receipt Date: 20200912
  Transmission Date: 20201103
  Serious: Yes (Hospitalization)
  Sender: FDA-Public Use
  Company Number: UA-MACLEODS PHARMACEUTICALS US LTD-MAC2019021622

PATIENT

DRUGS (3)
  1. LEVOMAC IV [Suspect]
     Active Substance: LEVOFLOXACIN
     Indication: DIABETIC FOOT
     Dosage: 500 MILLIGRAM IN 100 ML
     Route: 042
     Dates: start: 20190522, end: 20190522
  2. METRONIDAZOLE. [Concomitant]
     Active Substance: METRONIDAZOLE
     Indication: PRODUCT USED FOR UNKNOWN INDICATION
     Dosage: 100 MILLILITER, QD
     Route: 042
     Dates: start: 20190513
  3. ENOXAPARIN SODIUM. [Concomitant]
     Active Substance: ENOXAPARIN SODIUM
     Indication: PRODUCT USED FOR UNKNOWN INDICATION
     Dosage: 0.4 MILLILITER, QD
     Route: 042
     Dates: start: 20190515

REACTIONS (2)
  - Tremor [Recovered/Resolved]
  - Blood pressure increased [Recovered/Resolved]

NARRATIVE: CASE EVENT DATE: 20190522
